FAERS Safety Report 7240736-0 (Version None)
Quarter: 2011Q1

REPORT INFORMATION
  Report Type: 
  Country: None (occurrence: None)
  Receive Date: 20110124
  Receipt Date: 20110114
  Transmission Date: 20110831
  Serious: Yes (Other)
  Sender: FDA-Public Use
  Company Number: PT-US-EMD SERONO, INC.-7036021

PATIENT
  Age: 23 Year
  Sex: Male

DRUGS (3)
  1. REBIF [Suspect]
     Dates: start: 20090301
  2. REBIF [Suspect]
     Indication: MULTIPLE SCLEROSIS
     Route: 058
     Dates: start: 20050101
  3. REBIF [Suspect]
     Dates: start: 20060601, end: 20081201

REACTIONS (1)
  - COLITIS ULCERATIVE [None]
